FAERS Safety Report 6999691-0 (Version None)
Quarter: 2010Q3

REPORT INFORMATION
  Report Type: 
  Country: None (occurrence: None)
  Receive Date: 20100920
  Receipt Date: 20100111
  Transmission Date: 20110219
  Serious: No
  Sender: FDA-Public Use
  Company Number: US-ASTRAZENECA-2009SE19747

PATIENT
  Age: 35 Year
  Sex: Female
  Weight: 104.3 kg

DRUGS (10)
  1. SEROQUEL [Suspect]
     Indication: PSYCHOTIC DISORDER
     Route: 048
     Dates: start: 20000101
  2. SEROQUEL [Suspect]
     Indication: POST-TRAUMATIC STRESS DISORDER
     Route: 048
     Dates: start: 20000101
  3. SEROQUEL [Suspect]
     Indication: DISSOCIATIVE DISORDER
     Route: 048
     Dates: start: 20000101
  4. ABILIFY [Concomitant]
  5. HALDOL [Concomitant]
  6. RISPERDAL [Concomitant]
     Dates: start: 19900101
  7. STELAZINE [Concomitant]
     Dates: start: 19920101
  8. THORAZINE [Concomitant]
     Dates: start: 19920101
  9. ZYPREXA [Concomitant]
  10. TRAZODONE HCL [Concomitant]

REACTIONS (4)
  - BLOOD CHOLESTEROL INCREASED [None]
  - HYPERLIPIDAEMIA [None]
  - OBESITY [None]
  - TYPE 2 DIABETES MELLITUS [None]
